FAERS Safety Report 4661409-4 (Version None)
Quarter: 2005Q2

REPORT INFORMATION
  Report Type: 
  Country: None (occurrence: None)
  Receive Date: 20050513
  Receipt Date: 20050503
  Transmission Date: 20051028
  Serious: Yes (Death, Hospitalization)
  Sender: FDA-Public Use
  Company Number: 2005S1000924

PATIENT
  Age: 46 Year
  Sex: Male

DRUGS (4)
  1. PAXIL [Suspect]
     Indication: DRUG USE FOR UNKNOWN INDICATION
     Dosage: 30MG TWICE PER DAY
     Route: 048
  2. CLOZAPINE [Suspect]
     Indication: SCHIZOAFFECTIVE DISORDER
     Dosage: 500MG AT NIGHT
     Route: 048
     Dates: start: 20031008, end: 20050201
  3. BUSPAR [Suspect]
     Indication: DRUG USE FOR UNKNOWN INDICATION
     Route: 048
  4. TIAGABINE HYDROCHLORIDE [Concomitant]
     Route: 065

REACTIONS (2)
  - CONVULSION [None]
  - DEATH [None]
